FAERS Safety Report 5263250-0 (Version None)
Quarter: 2007Q1

REPORT INFORMATION
  Report Type: 
  Country: None (occurrence: None)
  Receive Date: 20061219
  Receipt Date: 20060913
  Transmission Date: 20070707
  Serious: No
  Sender: FDA-Public Use
  Company Number: 2006US002126

PATIENT
  Age: 70 Year
  Sex: Female

DRUGS (4)
  1. VESICARE [Suspect]
     Indication: MICTURITION URGENCY
     Dosage: SEE IMAGE
     Route: 048
  2. VESICARE [Suspect]
     Indication: MICTURITION URGENCY
     Dosage: SEE IMAGE
     Route: 048
  3. AMBIEN [Concomitant]
  4. PROGESTERONE [Concomitant]

REACTIONS (3)
  - ASTHENOPIA [None]
  - DRUG INEFFECTIVE [None]
  - FATIGUE [None]
